FAERS Safety Report 23461768 (Version 1)
Quarter: 2024Q1

REPORT INFORMATION
  Report Type: Spontaneous
  Country: US (occurrence: US)
  Receive Date: 20240131
  Receipt Date: 20240131
  Transmission Date: 20240409
  Serious: Yes (Other)
  Sender: FDA-Public Use
  Company Number: US-BAUSCHBL-2024BNL001062

PATIENT
  Sex: Female

DRUGS (1)
  1. NEOMYCIN AND POLYMYXIN B SULFATES AND HYDROCORTISONE [Suspect]
     Active Substance: HYDROCORTISONE\NEOMYCIN SULFATE\POLYMYXIN B SULFATE
     Indication: Product used for unknown indication
     Route: 001

REACTIONS (7)
  - Deafness unilateral [Unknown]
  - Dizziness [Unknown]
  - Vertigo [Unknown]
  - Vomiting [Unknown]
  - Balance disorder [Unknown]
  - Tinnitus [Unknown]
  - Otitis externa [Unknown]
